FAERS Safety Report 9002168 (Version 4)
Quarter: 2013Q3

REPORT INFORMATION
  Report Type: Spontaneous
  Country: US (occurrence: US)
  Receive Date: 20130107
  Receipt Date: 20130918
  Transmission Date: 20140515
  Serious: Yes (Other)
  Sender: FDA-Public Use
  Company Number: US-PFIZER INC-2012333215

PATIENT
  Age: 60 Year
  Sex: Female
  Weight: 92.97 kg

DRUGS (27)
  1. GABAPENTIN [Suspect]
     Dosage: 300 MG, 2X/DAY
     Dates: start: 20121123, end: 20121212
  2. GABAPENTIN [Suspect]
     Dosage: UNK
     Dates: end: 2013
  3. LYRICA [Suspect]
     Indication: LOWER LIMB FRACTURE
     Dosage: UNK
     Dates: end: 20121123
  4. LYRICA [Suspect]
     Indication: NEURALGIA
     Dosage: UNK
     Route: 048
  5. CLARITIN [Concomitant]
     Indication: HYPERSENSITIVITY
     Dosage: UNK
  6. CLARITIN [Concomitant]
     Indication: ASTHMA
  7. ALLEGRA [Concomitant]
     Indication: HYPERSENSITIVITY
     Dosage: UNK
  8. ALLEGRA [Concomitant]
     Indication: ASTHMA
  9. LORTAB [Concomitant]
     Indication: LOWER LIMB FRACTURE
     Dosage: 7.5 MG, 2X/DAY
  10. LORTAB [Concomitant]
     Indication: KNEE OPERATION
  11. ZOCOR [Interacting]
     Indication: BLOOD CHOLESTEROL ABNORMAL
     Dosage: UNK
  12. TOPROL XL [Concomitant]
     Indication: CARDIAC DISORDER
     Dosage: 100 MG, DAILY
  13. IMDUR [Concomitant]
     Indication: CARDIAC DISORDER
     Dosage: 60 MG, 2X/DAY
  14. PLAVIX [Concomitant]
     Indication: ARTERIOSCLEROSIS
     Dosage: 75 MG, DAILY
  15. PLAVIX [Concomitant]
     Indication: ATRIOVENTRICULAR BLOCK
  16. DYAZIDE [Concomitant]
     Indication: ARTERIOSCLEROSIS
     Dosage: 37.5/25 MG,DAILY
  17. DYAZIDE [Concomitant]
     Indication: ATRIOVENTRICULAR BLOCK
  18. PRAVACHOL [Concomitant]
     Indication: BLOOD CHOLESTEROL ABNORMAL
     Dosage: 80 MG, DAILY
  19. XANAX [Concomitant]
     Indication: NERVOUS SYSTEM DISORDER
     Dosage: 0.25 MG, 2X/DAY
  20. ZOLOFT [Concomitant]
     Indication: DEPRESSION
     Dosage: 100 MG, DAILY
  21. CYMBALTA [Concomitant]
     Indication: DEPRESSION
     Dosage: 90 MG(60 MG PLUS 30 MG),  DAILY
  22. NORVASC [Concomitant]
     Indication: HYPERTENSION
     Dosage: 5 MG, 2X/DAY
  23. DULERA [Concomitant]
     Indication: ASTHMA
     Dosage: 200/5 UG,2X/DAY
  24. NITROTAB [Concomitant]
     Indication: CHEST PAIN
     Dosage: 0.4 MG, AS NEEDED
  25. ZYRTEC [Concomitant]
     Indication: HYPERSENSITIVITY
     Dosage: 10 MG, DAILY
  26. ZYRTEC [Concomitant]
     Indication: ASTHMA
  27. NOVOLIN R [Concomitant]
     Dosage: UNK

REACTIONS (3)
  - Diplopia [Unknown]
  - Vision blurred [Unknown]
  - Dizziness [Unknown]
